FAERS Safety Report 5194116-2 (Version None)
Quarter: 2006Q4

REPORT INFORMATION
  Report Type: 
  Country: None (occurrence: None)
  Receive Date: 20061222
  Receipt Date: 20061218
  Transmission Date: 20070319
  Serious: Yes (Hospitalization, Other)
  Sender: FDA-Public Use
  Company Number: 163-21880-06110029

PATIENT
  Age: 62 Year
  Sex: Female
  Weight: 68.6 kg

DRUGS (13)
  1. REVLIMID [Suspect]
     Indication: MULTIPLE MYELOMA
     Dosage: 10 MG, QD DAYS 1-14, ORAL
     Route: 048
     Dates: start: 20060918, end: 20061130
  2. VELCADE [Suspect]
     Indication: MULTIPLE MYELOMA
     Dosage: 1 MG/M2, DAYS 1, 4, 8, 11,
     Dates: start: 20060918, end: 20061121
  3. DEXAMETHASONE TAB [Suspect]
     Indication: MULTIPLE MYELOMA
     Dosage: 20 MG, DAYS 1, 2, 4, 5, 8, 9, 11+12, Q 21 DAYS, ORAL
     Route: 048
     Dates: start: 20060918, end: 20061121
  4. DEXAMETHASONE TAB [Suspect]
     Indication: MULTIPLE MYELOMA
     Dosage: 20 MG, DAYS 1, 2, 4, 5, 8, 9, 11+12, Q 21 DAYS, ORAL
     Route: 048
     Dates: start: 20060918
  5. ASPIRIN [Concomitant]
  6. LASIX [Concomitant]
  7. FELODIPINE [Concomitant]
  8. MAGNESIUM (MAGNESIUM) [Concomitant]
  9. PRILOSEC [Concomitant]
  10. LOVASTATIN [Concomitant]
  11. FOLATE (FOLIC ACID) [Concomitant]
  12. CALCIUM (CALCIUM) [Concomitant]
  13. ALLOPURINOL [Concomitant]

REACTIONS (11)
  - ALBUMIN URINE PRESENT [None]
  - BLOOD LACTATE DEHYDROGENASE INCREASED [None]
  - DYSPNOEA [None]
  - ELECTROCARDIOGRAM QT CORRECTED INTERVAL PROLONGED [None]
  - GLOMERULONEPHRITIS [None]
  - HAEMOLYTIC ANAEMIA [None]
  - HYPOCALCAEMIA [None]
  - HYPOMAGNESAEMIA [None]
  - OEDEMA PERIPHERAL [None]
  - RENAL FAILURE [None]
  - WEIGHT INCREASED [None]
